FAERS Safety Report 4544264-2 (Version None)
Quarter: 2004Q4

REPORT INFORMATION
  Report Type: 
  Country: None (occurrence: None)
  Receive Date: 20041230
  Receipt Date: 20041217
  Transmission Date: 20050328
  Serious: Yes (Hospitalization)
  Sender: FDA-Public Use
  Company Number: DSA_25345_2004

PATIENT
  Age: 82 Year
  Sex: Female

DRUGS (7)
  1. TEVETEN [Suspect]
     Dosage: DF PO
     Route: 048
     Dates: start: 20040901, end: 20040901
  2. OXYCONTIN [Concomitant]
  3. GABAPENTIN [Concomitant]
  4. CALCIUM GLUCONATE [Concomitant]
  5. TYLENOL [Concomitant]
  6. NEURONTIN [Concomitant]
  7. PANTALOC [Concomitant]

REACTIONS (2)
  - DIZZINESS [None]
  - HYPOAESTHESIA [None]
